FAERS Safety Report 5168435-X (Version None)
Quarter: 2006Q4

REPORT INFORMATION
  Report Type: 
  Country: None (occurrence: None)
  Receive Date: 20061208
  Receipt Date: 20060911
  Transmission Date: 20070319
  Serious: Yes (Other)
  Sender: FDA-Public Use
  Company Number: US-BAYER-200613869BCC

PATIENT
  Sex: Male
  Weight: 91 kg

DRUGS (1)
  1. ALKA SELTZER HEARTBURN RELIEF [Suspect]
     Indication: ANGINA PECTORIS
     Route: 048

REACTIONS (3)
  - ANGINA PECTORIS [None]
  - BLOOD CHOLESTEROL INCREASED [None]
  - MYOCARDIAL INFARCTION [None]
